FAERS Safety Report 12579518 (Version 1)
Quarter: 2016Q3

REPORT INFORMATION
  Report Type: Spontaneous
  Country: FR (occurrence: FR)
  Receive Date: 20160721
  Receipt Date: 20160721
  Transmission Date: 20161109
  Serious: Yes (Hospitalization)
  Sender: FDA-Public Use
  Company Number: FR-AMGEN-FRASP2016090739

PATIENT
  Age: 47 Year
  Sex: Female
  Weight: 68.2 kg

DRUGS (1)
  1. XGEVA [Suspect]
     Active Substance: DENOSUMAB
     Indication: PROPHYLAXIS
     Dosage: 120 MG, Q4WK
     Route: 058
     Dates: start: 20151218, end: 201604

REACTIONS (2)
  - Hypocalcaemia [Not Recovered/Not Resolved]
  - Blood parathyroid hormone increased [Not Recovered/Not Resolved]

NARRATIVE: CASE EVENT DATE: 20160329
